FAERS Safety Report 23896349 (Version 1)
Quarter: 2024Q2

REPORT INFORMATION
  Report Type: Spontaneous
  Country: GU (occurrence: GU)
  Receive Date: 20240524
  Receipt Date: 20240524
  Transmission Date: 20240716
  Serious: Yes (Other)
  Sender: FDA-Public Use
  Company Number: GU-MYLANLABS-2024M1047092

PATIENT
  Age: 62 Year
  Sex: Male

DRUGS (9)
  1. PEMETREXED [Suspect]
     Active Substance: PEMETREXED
     Indication: Lung adenocarcinoma stage IV
     Dosage: UNK UNK, CYCLE, 4 CYCLES RECEIVED
     Route: 065
  2. CISPLATIN [Suspect]
     Active Substance: CISPLATIN
     Indication: Lung adenocarcinoma stage IV
     Dosage: UNK UNK, CYCLE, 4 CYCLES RECEIVED
     Route: 065
  3. DOCETAXEL [Suspect]
     Active Substance: DOCETAXEL\DOCETAXEL ANHYDROUS
     Indication: Lung adenocarcinoma stage IV
     Dosage: UNK, CYCLE, RECEIVED 5 CYCLES
     Route: 065
  4. GEMCITABINE [Suspect]
     Active Substance: GEMCITABINE
     Indication: Lung adenocarcinoma stage IV
     Dosage: UNK
     Route: 065
  5. GEMCITABINE [Suspect]
     Active Substance: GEMCITABINE
     Indication: Metastases to central nervous system
  6. CARBOPLATIN [Suspect]
     Active Substance: CARBOPLATIN
     Indication: Lung adenocarcinoma stage IV
     Dosage: UNK, CYCLE, RECEIVED 5 CYCLES
     Route: 065
  7. PEMBROLIZUMAB [Suspect]
     Active Substance: PEMBROLIZUMAB
     Indication: Lung adenocarcinoma stage IV
     Dosage: UNK
     Route: 065
  8. VINORELBINE [Suspect]
     Active Substance: VINORELBINE TARTRATE
     Indication: Lung adenocarcinoma stage IV
     Dosage: UNK
     Route: 065
  9. VINORELBINE [Suspect]
     Active Substance: VINORELBINE TARTRATE
     Indication: Metastases to central nervous system

REACTIONS (1)
  - Drug ineffective [Unknown]
